FAERS Safety Report 23035726 (Version 2)
Quarter: 2024Q4

REPORT INFORMATION
  Report Type: Report from Study
  Country: US (occurrence: US)
  Receive Date: 20231006
  Receipt Date: 20241119
  Transmission Date: 20250115
  Serious: No
  Sender: NOVARTIS
  Company Number: US-002147023-NVSC2023US214571

PATIENT
  Age: 59 Year
  Sex: Male

DRUGS (1)
  1. ENTRESTO [Suspect]
     Active Substance: SACUBITRIL\VALSARTAN
     Indication: Product used for unknown indication
     Dosage: 1 DOSAGE FORM, BID
     Route: 048
     Dates: start: 202211

REACTIONS (5)
  - Dyspnoea [Recovered/Resolved]
  - Product use issue [Recovered/Resolved]
  - Feeling abnormal [Unknown]
  - Stress [Unknown]
  - Fear [Unknown]

NARRATIVE: CASE EVENT DATE: 20231001
